FAERS Safety Report 18853017 (Version 1)
Quarter: 2021Q1

REPORT INFORMATION
  Report Type: Not Available
  Country: None (occurrence: None)
  Receive Date: 20210205
  Receipt Date: 20210205
  Transmission Date: 20210420
  Serious: No
  Sender: FDA-Public Use
  Company Number: US-AKORN-160633

PATIENT
  Age: 70 Year
  Sex: Female

DRUGS (1)
  1. CLINDAMYCIN IN 5% DEXTROSE INJECTION [Suspect]
     Active Substance: CLINDAMYCIN PHOSPHATE

REACTIONS (2)
  - Rash [Unknown]
  - Drug hypersensitivity [Unknown]
